FAERS Safety Report 6310264-5 (Version None)
Quarter: 2009Q3

REPORT INFORMATION
  Report Type: 
  Country: None (occurrence: None)
  Receive Date: 20090811
  Receipt Date: 20090728
  Transmission Date: 20100115
  Serious: Yes (Hospitalization)
  Sender: FDA-Public Use
  Company Number: KV200800147

PATIENT
  Age: 52 Year
  Sex: Male
  Weight: 59 kg

DRUGS (2)
  1. MORPHINE SULFATE [Suspect]
     Indication: PAIN MANAGEMENT
     Dosage: ORAL
     Route: 048
     Dates: start: 19980101, end: 20080101
  2. BUSPAR [Concomitant]

REACTIONS (4)
  - CONTUSION [None]
  - CONVULSION [None]
  - PNEUMONIA [None]
  - PRODUCT QUALITY ISSUE [None]
